FAERS Safety Report 19075908 (Version 2)
Quarter: 2021Q3

REPORT INFORMATION
  Report Type: Spontaneous
  Country: US (occurrence: US)
  Receive Date: 20210330
  Receipt Date: 20210730
  Transmission Date: 20211014
  Serious: Yes (Other)
  Sender: FDA-Public Use
  Company Number: US-GILEAD-2021-0523093

PATIENT
  Age: 32 Year
  Sex: Male
  Weight: 95.24 kg

DRUGS (68)
  1. TRUVADA [Suspect]
     Active Substance: EMTRICITABINE\TENOFOVIR DISOPROXIL FUMARATE
     Indication: HIV INFECTION
     Dosage: UNK
     Route: 048
     Dates: start: 20110118, end: 20140910
  2. ALPRAZOLAM. [Concomitant]
     Active Substance: ALPRAZOLAM
  3. CIPROFLOXACIN. [Concomitant]
     Active Substance: CIPROFLOXACIN
  4. DOXYCYCLINE MONOHYDRATE [Concomitant]
     Active Substance: DOXYCYCLINE
  5. FLUTICASONE. [Concomitant]
     Active Substance: FLUTICASONE
  6. HYDRALAZINE [Concomitant]
     Active Substance: HYDRALAZINE HYDROCHLORIDE
  7. HYDROCODONE [Concomitant]
     Active Substance: HYDROCODONE
  8. HYDROXYZINE [Concomitant]
     Active Substance: HYDROXYZINE HYDROCHLORIDE
  9. ONDANSETRON [Concomitant]
     Active Substance: ONDANSETRON
  10. VALACYCLOVIR [Concomitant]
     Active Substance: VALACYCLOVIR HYDROCHLORIDE
  11. VANCOMYCIN [Concomitant]
     Active Substance: VANCOMYCIN
  12. ZOLOFT [Concomitant]
     Active Substance: SERTRALINE HYDROCHLORIDE
  13. DESCOVY [Concomitant]
     Active Substance: EMTRICITABINE\TENOFOVIR ALAFENAMIDE FUMARATE
  14. GENVOYA [Concomitant]
     Active Substance: COBICISTAT\ELVITEGRAVIR\EMTRICITABINE\TENOFOVIR ALAFENAMIDE FUMARATE
  15. TIVICAY [Concomitant]
     Active Substance: DOLUTEGRAVIR SODIUM
  16. ACETAMINOPHEN. [Concomitant]
     Active Substance: ACETAMINOPHEN
  17. CHLORTHALIDONE. [Concomitant]
     Active Substance: CHLORTHALIDONE
  18. FERROUS SULFATE. [Concomitant]
     Active Substance: FERROUS SULFATE
  19. INSULIN [Concomitant]
     Active Substance: INSULIN NOS
  20. METOLAZONE. [Concomitant]
     Active Substance: METOLAZONE
  21. OMEPRAZOLE. [Concomitant]
     Active Substance: OMEPRAZOLE
  22. PREZCOBIX [Concomitant]
     Active Substance: COBICISTAT\DARUNAVIR ETHANOLATE
  23. GABAPENTIN. [Concomitant]
     Active Substance: GABAPENTIN
  24. NIFEDIPINE. [Concomitant]
     Active Substance: NIFEDIPINE
  25. ATORVASTATIN [Concomitant]
     Active Substance: ATORVASTATIN
  26. BISACODYL. [Concomitant]
     Active Substance: BISACODYL
  27. DICYCLOMINE [Concomitant]
     Active Substance: DICYCLOMINE HYDROCHLORIDE
  28. LIDOCAINE. [Concomitant]
     Active Substance: LIDOCAINE
  29. LOSARTAN. [Concomitant]
     Active Substance: LOSARTAN
  30. METHOCARBAMOL. [Concomitant]
     Active Substance: METHOCARBAMOL
  31. MORPHINE [Concomitant]
     Active Substance: MORPHINE
  32. TRAMADOL. [Concomitant]
     Active Substance: TRAMADOL
  33. TRUVADA [Suspect]
     Active Substance: EMTRICITABINE\TENOFOVIR DISOPROXIL FUMARATE
     Dosage: UNK
     Route: 048
     Dates: start: 20140910, end: 20180628
  34. CATAPRES [Concomitant]
     Active Substance: CLONIDINE HYDROCHLORIDE
  35. DIPHENOXYLATE [Concomitant]
     Active Substance: DIPHENOXYLATE
  36. DOXYCYCLINE HYCLATE. [Concomitant]
     Active Substance: DOXYCYCLINE HYCLATE
  37. FUROSEMIDE. [Concomitant]
     Active Substance: FUROSEMIDE
  38. HUMALOG [Concomitant]
     Active Substance: INSULIN LISPRO
  39. HYDROCHLOROTHIAZIDE. [Concomitant]
     Active Substance: HYDROCHLOROTHIAZIDE
  40. MINOXIDIL. [Concomitant]
     Active Substance: MINOXIDIL
  41. OXYCODONE [Concomitant]
     Active Substance: OXYCODONE
  42. PANTOPRAZOLE [Concomitant]
     Active Substance: PANTOPRAZOLE
  43. PROAIR HFA [Concomitant]
     Active Substance: ALBUTEROL SULFATE
  44. PROMETHAZINE [Concomitant]
     Active Substance: PROMETHAZINE HYDROCHLORIDE
  45. SILVER SULFADIAZINE. [Concomitant]
     Active Substance: SILVER SULFADIAZINE
  46. VENLAFAXINE [Concomitant]
     Active Substance: VENLAFAXINE HYDROCHLORIDE
  47. ISENTRESS [Concomitant]
     Active Substance: RALTEGRAVIR POTASSIUM
  48. BUMETANIDE. [Concomitant]
     Active Substance: BUMETANIDE
  49. CARVEDILOL. [Concomitant]
     Active Substance: CARVEDILOL
  50. CYCLOBENZAPRINE. [Concomitant]
     Active Substance: CYCLOBENZAPRINE
  51. DILTIAZEM. [Concomitant]
     Active Substance: DILTIAZEM
  52. GAVILYTE G [Concomitant]
     Active Substance: POLYETHYLENE GLYCOL 3350\POTASSIUM CHLORIDE\SODIUM BICARBONATE\SODIUM CHLORIDE\SODIUM SULFATE
  53. LANTUS [Concomitant]
     Active Substance: INSULIN GLARGINE
  54. METOCLOPRAMIDE. [Concomitant]
     Active Substance: METOCLOPRAMIDE
  55. POTASSIUM [Concomitant]
     Active Substance: POTASSIUM
  56. PROVENTIL [Concomitant]
     Active Substance: ALBUTEROL
  57. SULFAMETHOXAZOLE [Concomitant]
     Active Substance: SULFAMETHOXAZOLE
  58. TOPIRAMATE. [Concomitant]
     Active Substance: TOPIRAMATE
  59. AMITRIPTYLLINE [Concomitant]
     Active Substance: AMITRIPTYLINE
  60. AMLODIPINE [Concomitant]
     Active Substance: AMLODIPINE BESYLATE
  61. IBUPROFEN. [Concomitant]
     Active Substance: IBUPROFEN
  62. ISOSORBIDE DINITRATE. [Concomitant]
     Active Substance: ISOSORBIDE DINITRATE
  63. HUMULIN R [Concomitant]
     Active Substance: INSULIN HUMAN
  64. LEVOFLOXACIN. [Concomitant]
     Active Substance: LEVOFLOXACIN
  65. LISINOPRIL. [Concomitant]
     Active Substance: LISINOPRIL
  66. METRONIDAZOLE. [Concomitant]
     Active Substance: METRONIDAZOLE
  67. MUPIROCIN. [Concomitant]
     Active Substance: MUPIROCIN
  68. VITAMIN D2 [Concomitant]
     Active Substance: ERGOCALCIFEROL

REACTIONS (10)
  - Chronic kidney disease [Not Recovered/Not Resolved]
  - Quality of life decreased [Not Recovered/Not Resolved]
  - Emotional distress [Not Recovered/Not Resolved]
  - Anhedonia [Not Recovered/Not Resolved]
  - Renal injury [Unknown]
  - Acute kidney injury [Recovered/Resolved]
  - Dyspnoea [Not Recovered/Not Resolved]
  - Pain [Not Recovered/Not Resolved]
  - Renal failure [Not Recovered/Not Resolved]
  - Anxiety [Not Recovered/Not Resolved]

NARRATIVE: CASE EVENT DATE: 20180109
